FAERS Safety Report 21733174 (Version 1)
Quarter: 2022Q4

REPORT INFORMATION
  Report Type: Spontaneous
  Country: CZ (occurrence: CZ)
  Receive Date: 20221215
  Receipt Date: 20221215
  Transmission Date: 20230113
  Serious: Yes (Death, Other)
  Sender: FDA-Public Use
  Company Number: CZ-002147023-NVSC2022CZ232465

PATIENT
  Sex: Male

DRUGS (3)
  1. PREGABALIN [Suspect]
     Active Substance: PREGABALIN
     Indication: Pain
     Dosage: 75 MG, QN (0-0-1)
     Route: 048
  2. PREGABALIN [Suspect]
     Active Substance: PREGABALIN
     Dosage: 75 MG, BID (1-0-1) AFTER 3 DAYS
     Route: 048
  3. FENTANYL [Suspect]
     Active Substance: FENTANYL
     Indication: Pain
     Dosage: UNK, Q72H (EVERY 72H)
     Route: 065

REACTIONS (6)
  - Death [Fatal]
  - Delirium [Unknown]
  - Urinary retention [Unknown]
  - Condition aggravated [Unknown]
  - Somnolence [Unknown]
  - Drug ineffective [Recovering/Resolving]
